FAERS Safety Report 20947490 (Version 1)
Quarter: 2022Q2

REPORT INFORMATION
  Report Type: Spontaneous
  Country: US (occurrence: US)
  Receive Date: 20220610
  Receipt Date: 20220610
  Transmission Date: 20220721
  Serious: No
  Sender: FDA-Public Use
  Company Number: US-RIGEL PHARMACEUTICALS, INC.-2021FOS000826

PATIENT
  Sex: Female
  Weight: 63.22 kg

DRUGS (1)
  1. TAVALISSE [Suspect]
     Active Substance: FOSTAMATINIB
     Indication: Immune thrombocytopenia
     Dosage: 150 MG, BID
     Route: 048

REACTIONS (6)
  - Haematochezia [Unknown]
  - Gastric haemorrhage [Unknown]
  - Nodule [Unknown]
  - Haemorrhoids [Unknown]
  - Cough [Unknown]
  - Product physical issue [Unknown]
